FAERS Safety Report 15517036 (Version 1)
Quarter: 2018Q4

REPORT INFORMATION
  Report Type: Spontaneous
  Country: US (occurrence: US)
  Receive Date: 20181017
  Receipt Date: 20181017
  Transmission Date: 20190205
  Serious: No
  Sender: FDA-Public Use
  Company Number: US-009507513-1810USA005361

PATIENT
  Sex: Female

DRUGS (1)
  1. KEYTRUDA [Suspect]
     Active Substance: PEMBROLIZUMAB
     Indication: UNDIFFERENTIATED SARCOMA
     Dosage: UNK

REACTIONS (3)
  - Product use in unapproved indication [Unknown]
  - Circumstance or information capable of leading to medication error [Unknown]
  - Intercepted medication error [Unknown]
